FAERS Safety Report 9555535 (Version 2)
Quarter: 2013Q4

REPORT INFORMATION
  Report Type: Spontaneous
  Country: US (occurrence: US)
  Receive Date: 20130926
  Receipt Date: 20131001
  Transmission Date: 20140711
  Serious: No
  Sender: FDA-Public Use
  Company Number: US-009507513-1309USA012406

PATIENT
  Age: 45 Year
  Sex: Male

DRUGS (4)
  1. PROVENTIL [Suspect]
     Indication: EMPHYSEMA
     Dosage: 3-4 INHALATIONS PER DAYS AS NEEDED
     Route: 055
  2. PROVENTIL [Suspect]
     Indication: ASTHMA
  3. FLOVENT [Concomitant]
     Dosage: UNK
  4. QUETIAPINE FUMARATE [Concomitant]
     Dosage: UNK

REACTIONS (4)
  - Dyspnoea [Recovered/Resolved]
  - Cough [Recovered/Resolved]
  - Drug dose omission [Unknown]
  - Product quality issue [Unknown]
